FAERS Safety Report 6555681-3 (Version None)
Quarter: 2010Q1

REPORT INFORMATION
  Report Type: 
  Country: None (occurrence: None)
  Receive Date: 20100128
  Receipt Date: 20100125
  Transmission Date: 20100710
  Serious: Yes (Death, Hospitalization)
  Sender: FDA-Public Use
  Company Number: PHHY2009GB21998

PATIENT
  Sex: Male

DRUGS (2)
  1. CLOZARIL [Suspect]
     Indication: SCHIZOPHRENIA
     Dosage: 600 MG, QD
     Route: 048
     Dates: end: 20090531
  2. CLORAL BETAINE [Concomitant]
     Dosage: 2 DF DAILY
     Route: 048

REACTIONS (8)
  - BRAIN ABSCESS [None]
  - BRAIN NEOPLASM [None]
  - BRAIN OPERATION [None]
  - CEREBRAL THROMBOSIS [None]
  - CONVULSION [None]
  - DEATH [None]
  - MALAISE [None]
  - PULMONARY EMBOLISM [None]
